FAERS Safety Report 16501009 (Version 2)
Quarter: 2020Q2

REPORT INFORMATION
  Report Type: Spontaneous
  Country: GB (occurrence: GB)
  Receive Date: 20190701
  Receipt Date: 20200407
  Transmission Date: 20200713
  Serious: Yes (Hospitalization, Other)
  Sender: FDA-Public Use
  Company Number: GB-AMGEN-GBRSP2019101582

PATIENT
  Age: 77 Year
  Sex: Female
  Weight: 63.8 kg

DRUGS (2)
  1. CALCIUM +VIT D [Concomitant]
     Active Substance: CALCIUM\VITAMIN D
  2. PROLIA [Suspect]
     Active Substance: DENOSUMAB
     Indication: OSTEOPOROSIS
     Dosage: 60 MILLIGRAM, TOTAL 10 INJECTIONS
     Route: 058
     Dates: start: 201209, end: 201709

REACTIONS (4)
  - Back pain [Recovering/Resolving]
  - Thoracic vertebral fracture [Recovering/Resolving]
  - Spinal fracture [Recovered/Resolved with Sequelae]
  - Fall [Recovering/Resolving]

NARRATIVE: CASE EVENT DATE: 2018
